FAERS Safety Report 7802609-1 (Version None)
Quarter: 2011Q4

REPORT INFORMATION
  Report Type: 
  Country: None (occurrence: None)
  Receive Date: 20111005
  Receipt Date: 20110713
  Transmission Date: 20120403
  Serious: Yes (Other)
  Sender: FDA-Public Use
  Company Number: 2011SP033117

PATIENT
  Age: 29 Year
  Sex: Female
  Weight: 61 kg

DRUGS (3)
  1. SPASFON [Concomitant]
  2. KETOPROFEN [Concomitant]
  3. NUVARING [Suspect]
     Indication: PRODUCT USED FOR UNKNOWN INDICATION

REACTIONS (3)
  - ABORTION SPONTANEOUS [None]
  - PREGNANCY ON CONTRACEPTIVE [None]
  - MATERNAL EXPOSURE DURING PREGNANCY [None]
